FAERS Safety Report 9392982 (Version 1)
Quarter: 2013Q3

REPORT INFORMATION
  Report Type: Report from Study
  Country: AR (occurrence: AR)
  Receive Date: 20130710
  Receipt Date: 20130710
  Transmission Date: 20140515
  Serious: Yes (Other)
  Sender: FDA-Public Use
  Company Number: PHHY2013AR072918

PATIENT
  Age: 60 Year
  Sex: Female

DRUGS (1)
  1. EXFORGE D [Suspect]
     Indication: HYPERTENSION
     Dosage: (160 MG VALS/ 5 MG AMLO/ 12.5 MG HYDR) DAILY
     Route: 048
     Dates: start: 2011

REACTIONS (2)
  - Eyelid function disorder [Not Recovered/Not Resolved]
  - Conjunctivitis [Not Recovered/Not Resolved]
